FAERS Safety Report 21345818 (Version 1)
Quarter: 2022Q3

REPORT INFORMATION
  Report Type: Report from Study
  Country: US (occurrence: US)
  Receive Date: 20220916
  Receipt Date: 20220916
  Transmission Date: 20221027
  Serious: Yes (Other)
  Sender: FDA-Public Use
  Company Number: US-PFIZER INC-PV202200063286

PATIENT
  Age: 55 Year
  Sex: Female
  Weight: 73 kg

DRUGS (6)
  1. PAXLOVID [Interacting]
     Active Substance: NIRMATRELVIR\RITONAVIR
     Indication: COVID-19 treatment
     Dosage: UNK
     Dates: start: 2022, end: 2022
  2. ORENITRAM [Suspect]
     Active Substance: TREPROSTINIL
     Indication: Pulmonary arterial hypertension
     Dosage: UNK
     Route: 048
     Dates: start: 20210212
  3. ORENITRAM [Suspect]
     Active Substance: TREPROSTINIL
     Dosage: EVERY 8 HOURS
     Route: 048
  4. ADEMPAS [Interacting]
     Active Substance: RIOCIGUAT
     Dosage: 1.5 MG, 3X/DAY
  5. ADEMPAS [Interacting]
     Active Substance: RIOCIGUAT
     Dosage: 1 MG, 3X/DAY
  6. OPSUMIT [Interacting]
     Active Substance: MACITENTAN
     Dosage: UNK

REACTIONS (18)
  - Hallucination [Recovering/Resolving]
  - COVID-19 [Recovering/Resolving]
  - Disease recurrence [Recovering/Resolving]
  - Drug interaction [Unknown]
  - Nausea [Unknown]
  - Flushing [Unknown]
  - Nasal congestion [Recovering/Resolving]
  - Headache [Recovering/Resolving]
  - Abdominal pain [Unknown]
  - Dyspnoea exertional [Not Recovered/Not Resolved]
  - Pulmonary arterial pressure increased [Not Recovered/Not Resolved]
  - Dyspepsia [Unknown]
  - Gastrointestinal hypomotility [Unknown]
  - Constipation [Unknown]
  - Inadequate diet [Unknown]
  - Cough [Recovering/Resolving]
  - Fatigue [Recovering/Resolving]
  - Blood pressure increased [Unknown]

NARRATIVE: CASE EVENT DATE: 20220101
